FAERS Safety Report 8242962-0 (Version None)
Quarter: 2012Q1

REPORT INFORMATION
  Report Type: 
  Country: None (occurrence: None)
  Receive Date: 20120329
  Receipt Date: 20120322
  Transmission Date: 20120608
  Serious: Yes (Other)
  Sender: FDA-Public Use
  Company Number: US-JNJFOC-20110807456

PATIENT
  Sex: Female

DRUGS (3)
  1. FLOVENT [Suspect]
     Indication: ASTHMA
     Route: 055
  2. PREDNISONE TAB [Suspect]
     Indication: PRODUCT USED FOR UNKNOWN INDICATION
     Route: 065
  3. LEVAQUIN [Suspect]
     Indication: SINUSITIS
     Route: 048
     Dates: start: 20080301

REACTIONS (5)
  - TENDONITIS [None]
  - PLANTAR FASCIITIS [None]
  - TENDON RUPTURE [None]
  - ROTATOR CUFF SYNDROME [None]
  - MUSCLE RUPTURE [None]
